FAERS Safety Report 9925238 (Version 1)
Quarter: 2014Q1

REPORT INFORMATION
  Report Type: Spontaneous
  Country: US (occurrence: US)
  Receive Date: 20140226
  Receipt Date: 20140226
  Transmission Date: 20141002
  Serious: Yes (Death, Life-Threatening)
  Sender: FDA-Public Use
  Company Number: US-BRACCO-009413

PATIENT
  Age: 61 Year
  Sex: Male
  Weight: 84 kg

DRUGS (26)
  1. CANGRELOR [Suspect]
     Indication: PERCUTANEOUS CORONARY INTERVENTION
     Dosage: BOLUS DOSE OF 6.2 ML
     Route: 040
     Dates: start: 20120119, end: 20120119
  2. ASPIRIN [Concomitant]
  3. ISOVUE 370 [Suspect]
     Indication: CATHETERISATION CARDIAC
     Route: 042
     Dates: start: 20120119, end: 20120119
  4. PRILOSEC [Concomitant]
     Dates: start: 20100824
  5. METHADONE HCL [Concomitant]
     Dates: start: 20100824
  6. DIGOXIN [Concomitant]
     Dates: start: 20100602
  7. SPIRONOLACTONE [Concomitant]
     Dates: start: 20100602
  8. NORMAL SALINE [Suspect]
     Indication: CATHETERISATION CARDIAC
     Dosage: 10 ML/HR FROM 12:33 UNTIL 21:05
     Route: 042
     Dates: start: 20120119, end: 20120119
  9. OXYGEN [Concomitant]
     Dosage: PATIENT INTUBATED AND RECEIVED OXYGEN VIA MECHANICAL VENTILATION
     Route: 055
  10. CLOPIDOGREL [Concomitant]
  11. LASIX [Concomitant]
     Dates: start: 20100824
  12. ATIVAN [Concomitant]
     Dates: start: 20120101
  13. REGULAR INSULIN [Concomitant]
     Dates: start: 20090101
  14. ALL OTHER THERAPEUTIC PRODUCTS [Suspect]
     Indication: PERCUTANEOUS CORONARY INTERVENTION
     Dosage: 4 CAPSULES LOADING DOSE AT 13:11
     Route: 048
     Dates: start: 20120119, end: 20120119
  15. ALL OTHER THERAPEUTIC PRODUCTS [Suspect]
     Indication: PERCUTANEOUS CORONARY INTERVENTION
     Dosage: 49.2 ML/HR FROM 13:00 TO 15:15
     Route: 042
     Dates: start: 20120119, end: 20120119
  16. ALL OTHER THERAPEUTIC PRODUCTS [Suspect]
     Indication: PERCUTANEOUS CORONARY INTERVENTION
     Dosage: 4 CAPSULES POST INFUSION AT 15:15
     Route: 048
     Dates: start: 20120119, end: 20120119
  17. DILTIAZEM ER [Concomitant]
     Dates: start: 20100604
  18. NPH INSULIN [Concomitant]
     Dates: start: 20090101
  19. SYMBICORT [Concomitant]
     Dates: start: 20110101
  20. ALBUTEROL [Concomitant]
     Dates: start: 20110101
  21. HEPARIN SODIUM [Concomitant]
  22. NORMAL SALINE [Concomitant]
     Dosage: 10ML/HR FOR 12:33 TO 21:05
     Dates: start: 20120119, end: 20120119
  23. ASPIRIN [Concomitant]
     Dosage: DOSE GIVEN POST-PROCEDURE
     Dates: start: 20120119, end: 20120119
  24. CLOPIDOGREL [Concomitant]
     Dosage: GIVEN POST-PROCEDURE
     Dates: start: 20120119, end: 20120119
  25. CLOPIDOGREL [Concomitant]
     Dosage: GIVEN AT DISCHARGE
     Dates: start: 20120119, end: 20120119
  26. ASPIRIN [Concomitant]
     Dosage: DOSE GIVEN AT DISCHARGE
     Dates: start: 20120119, end: 20120119

REACTIONS (1)
  - Cardiac failure congestive [Fatal]
